FAERS Safety Report 25790536 (Version 1)
Quarter: 2025Q3

REPORT INFORMATION
  Report Type: Report from Study
  Country: BR (occurrence: BR)
  Receive Date: 20250911
  Receipt Date: 20250911
  Transmission Date: 20251021
  Serious: Yes (Other)
  Sender: JOHNSON AND JOHNSON
  Company Number: BR-JNJFOC-20250905109

PATIENT
  Age: 57 Year
  Sex: Female

DRUGS (3)
  1. INFLIXIMAB [Suspect]
     Active Substance: INFLIXIMAB
     Indication: Crohn^s disease
     Route: 041
     Dates: start: 20230728
  2. INFLIXIMAB [Suspect]
     Active Substance: INFLIXIMAB
     Dosage: 6 BOXES
     Route: 041
     Dates: start: 202411
  3. INFLIXIMAB [Suspect]
     Active Substance: INFLIXIMAB
     Dosage: 6 BOXES
     Route: 041
     Dates: start: 20250903

REACTIONS (6)
  - Intestinal anastomosis [Unknown]
  - Ileectomy [Unknown]
  - Mucous stools [Not Recovered/Not Resolved]
  - Abdominal pain [Not Recovered/Not Resolved]
  - Diarrhoea [Not Recovered/Not Resolved]
  - Faecal calprotectin abnormal [Unknown]

NARRATIVE: CASE EVENT DATE: 20240901
